FAERS Safety Report 7641335-9 (Version None)
Quarter: 2011Q3

REPORT INFORMATION
  Report Type: 
  Country: None (occurrence: None)
  Receive Date: 20110728
  Receipt Date: 20110726
  Transmission Date: 20111222
  Serious: Yes (Death, Other)
  Sender: FDA-Public Use
  Company Number: GB-PFIZER INC-2011170591

PATIENT
  Age: 48 Year
  Sex: Female

DRUGS (6)
  1. ENOXAPARIN SODIUM [Concomitant]
  2. AUGMENTIN '125' [Concomitant]
  3. ANIDULAFUNGIN [Suspect]
     Dosage: 100 MG, 1X/DAY
     Route: 042
  4. ANIDULAFUNGIN [Suspect]
     Indication: PROPHYLAXIS
     Dosage: 200 MG, 1X/DAY
     Route: 042
  5. FLUCONAZOLE [Suspect]
     Indication: PROPHYLAXIS
     Dosage: 200 MG, 1X/DAY
  6. FLUCONAZOLE [Suspect]
     Dosage: 400 MG, 1X/DAY

REACTIONS (6)
  - SEPSIS [None]
  - HEPATITIS [None]
  - MULTI-ORGAN FAILURE [None]
  - DRUG INEFFECTIVE [None]
  - SEPTIC SHOCK [None]
  - LACTIC ACIDOSIS [None]
